FAERS Safety Report 16001308 (Version 1)
Quarter: 2019Q1

REPORT INFORMATION
  Report Type: Spontaneous
  Country: US (occurrence: US)
  Receive Date: 20190225
  Receipt Date: 20190225
  Transmission Date: 20190418
  Serious: Yes (Hospitalization)
  Sender: FDA-Public Use
  Company Number: US-TEVA-2019-US-1016933

PATIENT
  Age: 42 Year
  Sex: Female
  Weight: 86.18 kg

DRUGS (3)
  1. NIACIN. [Suspect]
     Active Substance: NIACIN
     Route: 065
  2. BENADRYL [Suspect]
     Active Substance: DIPHENHYDRAMINE HYDROCHLORIDE
     Route: 065
  3. CENTRUM SILVER FOR WOMEN [Suspect]
     Active Substance: MINERALS\VITAMINS
     Dosage: TAKEN ONLY ONCE
     Route: 048
     Dates: start: 20180612, end: 20180612

REACTIONS (10)
  - Cerebrovascular accident [Unknown]
  - Chills [Unknown]
  - Myocardial infarction [Unknown]
  - Overdose [Unknown]
  - Hypersensitivity [Unknown]
  - Somnolence [Unknown]
  - Malaise [Unknown]
  - Feeling abnormal [Unknown]
  - Palpitations [Unknown]
  - Hypoaesthesia [Unknown]

NARRATIVE: CASE EVENT DATE: 20180612
